FAERS Safety Report 8130568-3 (Version None)
Quarter: 2012Q1

REPORT INFORMATION
  Report Type: 
  Country: None (occurrence: None)
  Receive Date: 20120211
  Receipt Date: 20120203
  Transmission Date: 20120608
  Serious: Yes (Hospitalization, Other)
  Sender: FDA-Public Use
  Company Number: BR-ABBOTT-11P-020-0729740-00

PATIENT
  Sex: Female
  Weight: 35 kg

DRUGS (11)
  1. HUMIRA [Suspect]
     Indication: CROHN'S DISEASE
     Dosage: INDUCTION DOSE
     Route: 058
     Dates: start: 20110509
  2. MIDAZOLAM [Concomitant]
     Indication: SLEEP DISORDER THERAPY
  3. DRAMIN [Concomitant]
     Indication: NAUSEA
  4. HUMIRA [Suspect]
  5. BUDESONIDE [Concomitant]
     Indication: CROHN'S DISEASE
  6. LEXAPRO [Concomitant]
     Indication: ANTIDEPRESSANT THERAPY
  7. HUMIRA [Suspect]
     Dosage: INDUCTION DOSE
     Route: 058
     Dates: start: 20110523
  8. TRAMADOL HCL [Concomitant]
     Indication: PAIN
  9. LEXOTAN [Concomitant]
     Indication: SLEEP DISORDER THERAPY
  10. DEPRESS [Concomitant]
     Indication: ANTIDEPRESSANT THERAPY
  11. AZATHIOPRINE [Concomitant]
     Indication: CROHN'S DISEASE
     Dates: start: 20110901

REACTIONS (7)
  - COLOSTOMY INFECTION [None]
  - NAUSEA [None]
  - RECTAL DISCHARGE [None]
  - DIARRHOEA [None]
  - CROHN'S DISEASE [None]
  - GASTROINTESTINAL INFECTION [None]
  - ABDOMINAL PAIN [None]
